FAERS Safety Report 4332382-3 (Version None)
Quarter: 2004Q2

REPORT INFORMATION
  Report Type: 
  Country: None (occurrence: None)
  Receive Date: 20040401
  Receipt Date: 20040322
  Transmission Date: 20050107
  Serious: Yes (Other)
  Sender: FDA-Public Use
  Company Number: 2004019953

PATIENT
  Age: 30 Year
  Sex: Female

DRUGS (2)
  1. NEURONTIN [Suspect]
     Indication: BACK PAIN
     Dosage: 3600 MG (DAILY), ORAL
     Route: 048
     Dates: start: 20040101
  2. NEURONTIN [Suspect]
     Indication: NECK PAIN
     Dosage: 3600 MG (DAILY), ORAL
     Route: 048
     Dates: start: 20040101

REACTIONS (5)
  - BLINDNESS [None]
  - HYPOAESTHESIA [None]
  - SEXUAL DYSFUNCTION [None]
  - SOMNOLENCE [None]
  - WEIGHT INCREASED [None]
